FAERS Safety Report 10669778 (Version 1)
Quarter: 2014Q4

REPORT INFORMATION
  Report Type: Spontaneous
  Country: SE (occurrence: SE)
  Receive Date: 20141222
  Receipt Date: 20141222
  Transmission Date: 20150529
  Serious: Yes (Other)
  Sender: FDA-Public Use
  Company Number: SE-ROCHE-1512296

PATIENT
  Age: 52 Year
  Sex: Male

DRUGS (9)
  1. TRAMADOL [Concomitant]
     Active Substance: TRAMADOL
  2. CETIRIZINE [Concomitant]
     Active Substance: CETIRIZINE HYDROCHLORIDE
     Route: 065
  3. SALAZOPYRIN EN-TABS [Concomitant]
     Active Substance: SULFASALAZINE
     Route: 065
  4. ORUDIS GEL [Concomitant]
     Route: 065
  5. AZATHIOPRINE. [Concomitant]
     Active Substance: AZATHIOPRINE
  6. PEVISONE (SWEDEN) [Concomitant]
     Dosage: DOSE: 1MG/G +10 MG/G.
     Route: 065
  7. DAIVONEX [Concomitant]
     Active Substance: CALCIPOTRIENE
     Route: 065
  8. CELLCEPT [Suspect]
     Active Substance: MYCOPHENOLATE MOFETIL\MYCOPHENOLATE MOFETIL HYDROCHLORIDE
     Indication: RHEUMATIC DISORDER
     Route: 048
     Dates: start: 20141024, end: 20141125
  9. ORUDIS [Suspect]
     Active Substance: KETOPROFEN
     Indication: ARTHRALGIA
     Route: 048
     Dates: start: 20141024, end: 20141125

REACTIONS (3)
  - Fatigue [Unknown]
  - Constipation [Unknown]
  - Headache [Unknown]

NARRATIVE: CASE EVENT DATE: 201411
